FAERS Safety Report 16338329 (Version 1)
Quarter: 2019Q2

REPORT INFORMATION
  Report Type: Report from Study
  Country: US (occurrence: US)
  Receive Date: 20190521
  Receipt Date: 20190521
  Transmission Date: 20190711
  Serious: Yes (Other)
  Sender: FDA-Public Use
  Company Number: US-BAYER-2019-094988

PATIENT
  Age: 63 Year
  Sex: Female
  Weight: 86.17 kg

DRUGS (10)
  1. MELATONIN [Concomitant]
     Active Substance: MELATONIN
  2. IBUPROFEN. [Concomitant]
     Active Substance: IBUPROFEN
  3. PROCHLORPERAZINE. [Concomitant]
     Active Substance: PROCHLORPERAZINE
  4. METHIMAZOLE. [Concomitant]
     Active Substance: METHIMAZOLE
  5. MORPHINE [Concomitant]
     Active Substance: MORPHINE
  6. LONSURF [Concomitant]
     Active Substance: TIPIRACIL HYDROCHLORIDE\TRIFLURIDINE
  7. OXYCODONE [Concomitant]
     Active Substance: OXYCODONE
  8. STIVARGA [Suspect]
     Active Substance: REGORAFENIB
     Indication: COLON CANCER
     Dosage: 120 MG, QD
     Dates: start: 20180122
  9. OMEPRAZOLE. [Concomitant]
     Active Substance: OMEPRAZOLE
  10. LORAZEPAM. [Concomitant]
     Active Substance: LORAZEPAM

REACTIONS (2)
  - Blood count abnormal [None]
  - Off label use [None]
